FAERS Safety Report 6617875-8 (Version None)
Quarter: 2010Q1

REPORT INFORMATION
  Report Type: 
  Country: None (occurrence: None)
  Receive Date: 20100308
  Receipt Date: 20100224
  Transmission Date: 20100710
  Serious: Yes (Other)
  Sender: FDA-Public Use
  Company Number: AU-ELI_LILLY_AND_COMPANY-AU201002002132

PATIENT
  Age: 29 Year
  Sex: Male

DRUGS (7)
  1. ZYPREXA RELPREVV [Suspect]
     Indication: SCHIZOPHRENIA
     Dosage: 300 MG, UNKNOWN
     Route: 030
     Dates: start: 20091231
  2. ZYPREXA [Suspect]
     Indication: SCHIZOPHRENIA
     Dosage: 10 MG, 2/D
     Route: 048
     Dates: start: 20091214, end: 20091231
  3. ZYPREXA [Suspect]
     Dosage: 10 MG, 2/D
     Route: 048
     Dates: start: 20100101
  4. VALPROATE SODIUM [Concomitant]
     Dosage: 200 MG, 2/D
     Dates: start: 20091221
  5. VALPROATE SODIUM [Concomitant]
     Dosage: 500 MG, EACH MORNING
  6. VALPROATE SODIUM [Concomitant]
     Dosage: 1000 MG, EACH EVENING
  7. CLOPIXOL [Concomitant]
     Dosage: 100 MG, UNK
     Route: 030

REACTIONS (19)
  - AGITATION [None]
  - AKATHISIA [None]
  - ANXIETY [None]
  - ASTHENIA [None]
  - BLOOD PRESSURE INCREASED [None]
  - CONFUSIONAL STATE [None]
  - DELIRIUM [None]
  - DELUSION OF GRANDEUR [None]
  - DISORIENTATION [None]
  - EXTRAPYRAMIDAL DISORDER [None]
  - GAIT DISTURBANCE [None]
  - HALLUCINATION, VISUAL [None]
  - HUNGER [None]
  - INJECTION SITE HAEMORRHAGE [None]
  - POOR QUALITY SLEEP [None]
  - RESTLESSNESS [None]
  - SEDATION [None]
  - SINUS TACHYCARDIA [None]
  - THIRST [None]
